FAERS Safety Report 5281367-1 (Version None)
Quarter: 2007Q1

REPORT INFORMATION
  Report Type: 
  Country: None (occurrence: None)
  Receive Date: 20070330
  Receipt Date: 20070321
  Transmission Date: 20070707
  Serious: Yes (Hospitalization)
  Sender: FDA-Public Use
  Company Number: ES-BAYER-200711723GDS

PATIENT
  Age: 71 Year
  Sex: Male
  Weight: 67 kg

DRUGS (9)
  1. SORAFENIB [Suspect]
     Indication: RENAL CELL CARCINOMA STAGE UNSPECIFIED
     Dosage: TOTAL DAILY DOSE: 800 MG
     Route: 048
     Dates: start: 20070214, end: 20070313
  2. CAPECITABINE [Suspect]
     Indication: RENAL CELL CARCINOMA STAGE UNSPECIFIED
     Route: 065
  3. GEMFIBROZIL [Suspect]
     Indication: RENAL CELL CARCINOMA STAGE UNSPECIFIED
     Route: 065
  4. FUROSEMIDE [Concomitant]
     Indication: HYPERTENSION
     Route: 048
  5. OMEPRAZOLE [Concomitant]
     Indication: GASTRITIS PROPHYLAXIS
     Route: 048
  6. MANIDIPINE [Concomitant]
     Indication: HYPERTENSION
     Route: 048
  7. AMIODARONE HCL [Concomitant]
     Indication: ARRHYTHMIA
     Route: 048
  8. DOXAZOSIN MESYLATE [Concomitant]
     Indication: HYPERTENSION
     Route: 048
  9. DARBEPOETIN ALFA [Concomitant]
     Indication: ANAEMIA
     Route: 065

REACTIONS (1)
  - DEEP VEIN THROMBOSIS [None]
